FAERS Safety Report 5594159-0 (Version None)
Quarter: 2008Q1

REPORT INFORMATION
  Report Type: 
  Country: None (occurrence: None)
  Receive Date: 20080115
  Receipt Date: 20080109
  Transmission Date: 20080703
  Serious: Yes (Death)
  Sender: FDA-Public Use
  Company Number: 163-21880-08010538

PATIENT
  Age: 62 Year
  Sex: Female

DRUGS (1)
  1. REVLIMID [Suspect]
     Indication: MULTIPLE MYELOMA
     Dosage: 10-15MG, DAILY X21 DAYS EVERY 28 DAYS, ORAL
     Route: 048
     Dates: start: 20060801, end: 20071201

REACTIONS (1)
  - DEATH [None]
